FAERS Safety Report 22075361 (Version 1)
Quarter: 2023Q1

REPORT INFORMATION
  Report Type: Spontaneous
  Country: ES (occurrence: ES)
  Receive Date: 20230308
  Receipt Date: 20230308
  Transmission Date: 20230418
  Serious: Yes (Other)
  Sender: FDA-Public Use
  Company Number: ES-TEVA-2023-ES-2862653

PATIENT
  Age: 72 Year
  Sex: Female

DRUGS (1)
  1. LISINOPRIL [Suspect]
     Active Substance: LISINOPRIL
     Indication: Hypertension
     Route: 048
     Dates: start: 202302

REACTIONS (3)
  - Anuria [Not Recovered/Not Resolved]
  - Urinary retention [Unknown]
  - Oliguria [Not Recovered/Not Resolved]

NARRATIVE: CASE EVENT DATE: 20230201
